FAERS Safety Report 8606360 (Version 2)
Quarter: 2013Q1

REPORT INFORMATION
  Report Type: Spontaneous
  Country: US (occurrence: US)
  Receive Date: 20120608
  Receipt Date: 20130326
  Transmission Date: 20140127
  Serious: No
  Sender: FDA-Public Use
  Company Number: US-ASTRAZENECA-2011SE06432

PATIENT
  Age: 56 Year
  Sex: Female

DRUGS (2)
  1. PULMICORT FLEXHALER [Suspect]
     Route: 055
  2. ALBUTEROL [Concomitant]

REACTIONS (5)
  - Influenza [Unknown]
  - Vomiting [Unknown]
  - Headache [Unknown]
  - Discomfort [Unknown]
  - Drug dose omission [Unknown]
